FAERS Safety Report 24922429 (Version 3)
Quarter: 2025Q2

REPORT INFORMATION
  Report Type: Spontaneous
  Country: JP (occurrence: JP)
  Receive Date: 20250204
  Receipt Date: 20250620
  Transmission Date: 20250717
  Serious: Yes (Other)
  Sender: BAYER HEALTHCARE PHARMACEUTICALS INC.
  Company Number: JP-BAYER-2025A015854

PATIENT
  Age: 44 Year
  Sex: Female

DRUGS (7)
  1. MIRENA [Suspect]
     Active Substance: LEVONORGESTREL
     Indication: Heavy menstrual bleeding
     Dosage: 20?G/DAY
     Route: 015
     Dates: start: 20210824
  2. HERBALS [Concomitant]
     Active Substance: HERBALS
     Route: 048
  3. BEPOTASTINE BESYLATE [Concomitant]
     Active Substance: BEPOTASTINE BESYLATE
     Route: 048
  4. VIBRAMYCIN [Concomitant]
     Active Substance: DOXYCYCLINE
     Route: 048
  5. Ferrum [Concomitant]
     Route: 048
  6. DISOPYRAMIDE [Concomitant]
     Active Substance: DISOPYRAMIDE
     Route: 048
  7. OXETHAZAINE [Concomitant]
     Active Substance: OXETHAZAINE
     Route: 048

REACTIONS (2)
  - Breast cancer female [Unknown]
  - Cervical dysplasia [Recovered/Resolved]
